FAERS Safety Report 6315923-6 (Version None)
Quarter: 2009Q3

REPORT INFORMATION
  Report Type: 
  Country: None (occurrence: None)
  Receive Date: 20090818
  Receipt Date: 20090803
  Transmission Date: 20100115
  Serious: Yes (Other)
  Sender: FDA-Public Use
  Company Number: CHPA2009US16628

PATIENT
  Age: 91 Year
  Sex: Female

DRUGS (4)
  1. EXCEDRIN MIGRAINE (NCH) (CAFFINE CITRATE, ACETYLSALICYLIC ACID, ACETAM [Suspect]
     Indication: MIGRAINE
     Dosage: 2 DF, QD, ORAL
     Route: 048
     Dates: start: 20090701
  2. MAGNESIUM (MAGNESIUM) [Concomitant]
  3. VITAMIN B12 [Concomitant]
  4. CALCIUM (CALCIUM) [Concomitant]

REACTIONS (1)
  - VISUAL IMPAIRMENT [None]
